FAERS Safety Report 4798226-0 (Version None)
Quarter: 2005Q4

REPORT INFORMATION
  Report Type: 
  Country: None (occurrence: None)
  Receive Date: 20051012
  Receipt Date: 20050926
  Transmission Date: 20060501
  Serious: Yes (Other)
  Sender: FDA-Public Use
  Company Number: 8012472

PATIENT
  Age: 33 Year
  Sex: Male

DRUGS (1)
  1. KEPPRA [Suspect]
     Dosage: 4 DF

REACTIONS (3)
  - GASTRIC DISORDER [None]
  - GASTRIC INFECTION [None]
  - WEIGHT DECREASED [None]
